FAERS Safety Report 25719129 (Version 2)
Quarter: 2025Q3

REPORT INFORMATION
  Report Type: Spontaneous
  Country: US (occurrence: US)
  Receive Date: 20250823
  Receipt Date: 20250927
  Transmission Date: 20251020
  Serious: No
  Sender: SANOFI AVENTIS
  Company Number: US-SA-2025SA250483

PATIENT
  Age: 7 Year
  Sex: Female

DRUGS (1)
  1. DUPIXENT [Suspect]
     Active Substance: DUPILUMAB
     Indication: Dermatitis allergic
     Dosage: 300 MG, Q4W
     Route: 058
     Dates: start: 202506

REACTIONS (3)
  - Periorbital inflammation [Recovered/Resolved]
  - Pruritus [Recovered/Resolved]
  - Injection site pain [Unknown]

NARRATIVE: CASE EVENT DATE: 20250101
